FAERS Safety Report 8523245-8 (Version None)
Quarter: 2012Q3

REPORT INFORMATION
  Report Type: 
  Country: None (occurrence: None)
  Receive Date: 20120720
  Receipt Date: 20120710
  Transmission Date: 20120928
  Serious: Yes (Other)
  Sender: FDA-Public Use
  Company Number: FI-JNJFOC-20120607684

PATIENT
  Age: 50 Year
  Sex: Female

DRUGS (5)
  1. REMICADE [Suspect]
     Route: 042
  2. METHOTREXATE [Concomitant]
     Route: 065
  3. REMICADE [Suspect]
     Indication: CROHN'S DISEASE
     Dosage: HAD 3 PERIODS OF INFLIXIMAB, RECOMBINANT
     Route: 042
  4. AZATHIOPRINE [Concomitant]
     Route: 065
  5. HUMIRA [Suspect]
     Indication: PRODUCT USED FOR UNKNOWN INDICATION
     Dosage: 0.8 ML
     Route: 065

REACTIONS (4)
  - MYALGIA [None]
  - BLOOD CREATININE INCREASED [None]
  - SERUM SICKNESS [None]
  - DRUG SPECIFIC ANTIBODY PRESENT [None]
